FAERS Safety Report 19638782 (Version 4)
Quarter: 2022Q3

REPORT INFORMATION
  Report Type: Report from Study
  Country: US (occurrence: US)
  Receive Date: 20210729
  Receipt Date: 20220928
  Transmission Date: 20221026
  Serious: No
  Sender: FDA-Public Use
  Company Number: US-SA-SAC20210726000493

PATIENT
  Age: 54 Year
  Sex: Female

DRUGS (4)
  1. DUPIXENT [Suspect]
     Active Substance: DUPILUMAB
     Indication: Nasal polyps
     Dosage: 300 MG, QOW
     Route: 058
     Dates: start: 202203
  2. DUPIXENT [Suspect]
     Active Substance: DUPILUMAB
     Indication: Asthma
  3. DUPIXENT [Suspect]
     Active Substance: DUPILUMAB
     Indication: Rash
  4. DUPIXENT [Suspect]
     Active Substance: DUPILUMAB
     Indication: Asthma

REACTIONS (16)
  - Dry skin [Unknown]
  - Weight increased [Unknown]
  - Dry eye [Unknown]
  - Arthropod bite [Unknown]
  - Pyrexia [Unknown]
  - Erythema [Unknown]
  - Pain of skin [Unknown]
  - Pruritus [Unknown]
  - Ocular hyperaemia [Unknown]
  - Skin exfoliation [Unknown]
  - Ocular hyperaemia [Unknown]
  - Eye irritation [Unknown]
  - Eye pruritus [Unknown]
  - Rash [Unknown]
  - Product storage error [Unknown]
  - Product use in unapproved indication [Unknown]

NARRATIVE: CASE EVENT DATE: 20200101
